FAERS Safety Report 23067220 (Version 1)
Quarter: 2023Q4

REPORT INFORMATION
  Report Type: Spontaneous
  Country: GB (occurrence: None)
  Receive Date: 20231016
  Receipt Date: 20231016
  Transmission Date: 20240110
  Serious: Yes (Other)
  Sender: FDA-Public Use
  Company Number: GB-ROCHE-3437955

PATIENT
  Age: 17 Year

DRUGS (1)
  1. HEMLIBRA [Suspect]
     Active Substance: EMICIZUMAB-KXWH
     Indication: Product used for unknown indication
     Route: 065
     Dates: start: 202208, end: 20230606

REACTIONS (5)
  - Cerebellar haemorrhage [Unknown]
  - Head injury [Unknown]
  - Alcohol poisoning [Unknown]
  - Neoplasm [Unknown]
  - Headache [Unknown]

NARRATIVE: CASE EVENT DATE: 20220901
